FAERS Safety Report 5055993-9 (Version None)
Quarter: 2006Q3

REPORT INFORMATION
  Report Type: 
  Country: None (occurrence: None)
  Receive Date: 20060718
  Receipt Date: 20060718
  Transmission Date: 20061208
  Serious: No
  Sender: FDA-Public Use
  Company Number: None

PATIENT
  Sex: Male
  Weight: 73.9363 kg

DRUGS (1)
  1. RABAVERT [Suspect]
     Indication: ANIMAL SCRATCH
     Dosage: 1.0 ML IM DAY 0,3,7,14,28,IM
     Route: 030
     Dates: start: 20060603, end: 20060627

REACTIONS (3)
  - DIZZINESS [None]
  - HEADACHE [None]
  - NAUSEA [None]
